FAERS Safety Report 8889330 (Version 1)
Quarter: 2012Q4

REPORT INFORMATION
  Report Type: Spontaneous
  Country: US (occurrence: None)
  Receive Date: 20121101
  Receipt Date: 20121101
  Transmission Date: 20130627
  Serious: Yes (Life-Threatening)
  Sender: FDA-Public Use
  Company Number: None

PATIENT
  Sex: Female
  Weight: 65.77 kg

DRUGS (1)
  1. LEXAPRO [Suspect]
     Indication: BIPOLAR I DISORDER
     Dosage: 20 mg one daily oral
     Route: 048
     Dates: start: 20120601

REACTIONS (3)
  - Bipolar I disorder [None]
  - Disease recurrence [None]
  - Suicidal ideation [None]
